FAERS Safety Report 8524485-4 (Version None)
Quarter: 2012Q3

REPORT INFORMATION
  Report Type: 
  Country: None (occurrence: None)
  Receive Date: 20120720
  Receipt Date: 20120510
  Transmission Date: 20120928
  Serious: No
  Sender: FDA-Public Use
  Company Number: US-MYLANLABS-2012S1009798

PATIENT
  Age: 69 Year
  Sex: Male
  Weight: 111.13 kg

DRUGS (3)
  1. FLUOXETINE HCL [Suspect]
     Indication: ANXIETY
     Route: 048
     Dates: start: 20120501
  2. BUSPIRONE HCL [Suspect]
     Indication: ANXIETY
     Route: 048
     Dates: start: 20120501
  3. PRILOSEC [Concomitant]

REACTIONS (4)
  - TREMOR [None]
  - HEADACHE [None]
  - HYPERHIDROSIS [None]
  - NERVOUSNESS [None]
